FAERS Safety Report 14908403 (Version 1)
Quarter: 2018Q2

REPORT INFORMATION
  Report Type: Spontaneous
  Country: US (occurrence: US)
  Receive Date: 20180517
  Receipt Date: 20180517
  Transmission Date: 20180711
  Serious: Yes (Other)
  Sender: FDA-Public Use
  Company Number: US-AMGEN-USASP2018065335

PATIENT
  Age: 70 Year
  Sex: Female

DRUGS (3)
  1. ENBREL [Suspect]
     Active Substance: ETANERCEPT
     Indication: RHEUMATOID ARTHRITIS
     Dosage: UNK
     Route: 065
  2. ENBREL [Suspect]
     Active Substance: ETANERCEPT
     Dosage: 50 MG, QWK
     Route: 065
     Dates: start: 20180502
  3. NAPROXEN. [Concomitant]
     Active Substance: NAPROXEN
     Dosage: UNK

REACTIONS (10)
  - Injection site haemorrhage [Unknown]
  - Injection site warmth [Unknown]
  - Injection site pruritus [Recovered/Resolved]
  - Rheumatoid arthritis [Unknown]
  - Injection site swelling [Unknown]
  - Injection site pain [Unknown]
  - Basal cell carcinoma [Unknown]
  - Drug effect decreased [Unknown]
  - Injection site induration [Unknown]
  - Injection site erythema [Unknown]

NARRATIVE: CASE EVENT DATE: 2007
